FAERS Safety Report 5064919-3 (Version None)
Quarter: 2006Q3

REPORT INFORMATION
  Report Type: 
  Country: None (occurrence: None)
  Receive Date: 20060727
  Receipt Date: 20060727
  Transmission Date: 20061208
  Serious: No
  Sender: FDA-Public Use
  Company Number: None

PATIENT
  Sex: Female
  Weight: 64.7 kg

DRUGS (2)
  1. GEMCITABINE [Suspect]
     Indication: ANGIOSARCOMA
     Dosage: 800 MG/M2 D1, D8 IV
     Route: 042
     Dates: start: 20060711, end: 20060718
  2. CAPECITABINE [Suspect]
     Indication: ANGIOSARCOMA
     Dosage: 500 MG /M2 D1-D14 PO
     Route: 048
     Dates: start: 20060711, end: 20060725

REACTIONS (3)
  - DRUG TOXICITY [None]
  - NEUTROPHIL COUNT DECREASED [None]
  - WHITE BLOOD CELL COUNT DECREASED [None]
